FAERS Safety Report 23070057 (Version 1)
Quarter: 2023Q4

REPORT INFORMATION
  Report Type: Spontaneous
  Country: SI (occurrence: SI)
  Receive Date: 20231016
  Receipt Date: 20231016
  Transmission Date: 20240109
  Serious: Yes (Hospitalization, Other)
  Sender: FDA-Public Use
  Company Number: SI-TRIS PHARMA, INC.-23SI011111

PATIENT

DRUGS (15)
  1. RISPERIDONE [Suspect]
     Active Substance: RISPERIDONE
     Indication: Schizophrenia
     Dosage: 6 MILLIGRAM, QD
     Dates: start: 20230116, end: 20230118
  2. RISPERIDONE [Suspect]
     Active Substance: RISPERIDONE
     Dosage: 8 MILLIGRAM, QD
     Dates: start: 20230113, end: 20230115
  3. RISPERIDONE [Suspect]
     Active Substance: RISPERIDONE
     Dosage: 9 MILLIGRAM, QD
     Dates: start: 20230112, end: 20230112
  4. RISPERIDONE [Suspect]
     Active Substance: RISPERIDONE
     Dosage: 5 MILLIGRAM, QD
     Dates: start: 20221227, end: 20230111
  5. RISPERIDONE [Suspect]
     Active Substance: RISPERIDONE
     Dosage: 4 MILLIGRAM, QD
     Dates: start: 20221216, end: 20221226
  6. RISPERIDONE [Suspect]
     Active Substance: RISPERIDONE
     Dosage: UNK
  7. OLANZAPINE [Suspect]
     Active Substance: OLANZAPINE
     Indication: Schizophrenia
     Dosage: 20 MILLIGRAM, QD
     Dates: start: 20230123
  8. OLANZAPINE [Suspect]
     Active Substance: OLANZAPINE
     Dosage: 15 MILLIGRAM, QD
     Dates: start: 20230118, end: 20230122
  9. OLANZAPINE [Suspect]
     Active Substance: OLANZAPINE
     Dosage: 5 MILLIGRAM, QD
     Dates: start: 20230116, end: 20230117
  10. QUETIAPINE [Suspect]
     Active Substance: QUETIAPINE
     Indication: Schizophrenia
     Dosage: 25 MILLIGRAM, QD
     Dates: start: 20230202, end: 20230222
  11. QUETIAPINE [Suspect]
     Active Substance: QUETIAPINE
     Dosage: 100 MILLIGRAM, QD
     Dates: start: 20230123, end: 20230123
  12. QUETIAPINE [Suspect]
     Active Substance: QUETIAPINE
     Dosage: 50 MILLIGRAM, QD
     Dates: start: 20230113, end: 20230122
  13. BIPERIDEN [Suspect]
     Active Substance: BIPERIDEN
     Indication: Schizophrenia
     Dosage: 3 MILLIGRAM, QD
  14. BIPERIDEN [Suspect]
     Active Substance: BIPERIDEN
     Dosage: 2 MILLIGRAM, BID
     Dates: start: 20230112
  15. LORAZEPAM [Suspect]
     Active Substance: LORAZEPAM
     Indication: Schizophrenia
     Dosage: 3 MILLIGRAM

REACTIONS (11)
  - Psychotic symptom [Recovered/Resolved]
  - Schizophrenia [Recovered/Resolved]
  - Circulatory collapse [Recovered/Resolved]
  - Cardiac arrest [Recovered/Resolved]
  - Condition aggravated [Recovered/Resolved]
  - Hypophagia [Recovered/Resolved]
  - Hypovolaemia [Recovered/Resolved]
  - Parkinson^s disease [Recovered/Resolved]
  - Pulmonary embolism [Recovered/Resolved]
  - Sedation [Recovered/Resolved]
  - Therapeutic response decreased [Recovered/Resolved]

NARRATIVE: CASE EVENT DATE: 20230123
